FAERS Safety Report 8101803-2 (Version None)
Quarter: 2012Q1

REPORT INFORMATION
  Report Type: 
  Country: None (occurrence: None)
  Receive Date: 20120126
  Receipt Date: 20120118
  Transmission Date: 20120608
  Serious: Yes (Death)
  Sender: FDA-Public Use
  Company Number: DKLU1076211

PATIENT
  Age: 15 Year
  Sex: Male

DRUGS (1)
  1. SABRIL [Suspect]
     Indication: CONVULSION
     Dosage: 1000 MG MILLIGRAM(S), 2 IN 1 D, ORAL
     Route: 048
     Dates: start: 20110901

REACTIONS (1)
  - BRAIN NEOPLASM [None]
